FAERS Safety Report 13081689 (Version 2)
Quarter: 2020Q3

REPORT INFORMATION
  Report Type: Spontaneous
  Country: US (occurrence: US)
  Receive Date: 20170103
  Receipt Date: 20200820
  Transmission Date: 20201102
  Serious: No
  Sender: FDA-Public Use
  Company Number: US-JAZZ-2016-US-024619

PATIENT
  Sex: Male

DRUGS (17)
  1. GABAPENTIN. [Suspect]
     Active Substance: GABAPENTIN
     Indication: PRODUCT USED FOR UNKNOWN INDICATION
  2. FISH OIL [Concomitant]
     Active Substance: FISH OIL
  3. XYREM [Suspect]
     Active Substance: SODIUM OXYBATE
     Indication: CATAPLEXY
     Dosage: DOSE ADJUSTMENT
     Route: 048
     Dates: start: 200808, end: 201306
  4. ADDERALL [Concomitant]
     Active Substance: AMPHETAMINE ASPARTATE\AMPHETAMINE SULFATE\DEXTROAMPHETAMINE SACCHARATE\DEXTROAMPHETAMINE SULFATE
  5. LUNESTA [Concomitant]
     Active Substance: ESZOPICLONE
  6. XYREM [Suspect]
     Active Substance: SODIUM OXYBATE
     Indication: NARCOLEPSY
     Dosage: 2.25G, BID
     Route: 048
     Dates: start: 200805, end: 200808
  7. XYREM [Suspect]
     Active Substance: SODIUM OXYBATE
     Dosage: 6.5GRAM, BID
     Route: 048
     Dates: start: 201306, end: 2017
  8. ATORVASTATIN [Concomitant]
     Active Substance: ATORVASTATIN
  9. AMBIEN [Concomitant]
     Active Substance: ZOLPIDEM TARTRATE
  10. DOXYLAMINE [Concomitant]
     Active Substance: DOXYLAMINE
  11. BYSTOLIC [Concomitant]
     Active Substance: NEBIVOLOL HYDROCHLORIDE
  12. TEMAZEPAM. [Concomitant]
     Active Substance: TEMAZEPAM
  13. VITAMIN D3 [Concomitant]
     Active Substance: CHOLECALCIFEROL
  14. DIOVAN [Suspect]
     Active Substance: VALSARTAN
     Indication: HYPERTENSION
  15. COENZYME Q10 [Concomitant]
     Active Substance: DIETARY SUPPLEMENT\UBIDECARENONE
  16. RITALIN [Concomitant]
     Active Substance: METHYLPHENIDATE HYDROCHLORIDE
  17. LIPITOR [Concomitant]
     Active Substance: ATORVASTATIN CALCIUM

REACTIONS (5)
  - Hypertension [Unknown]
  - Blood electrolytes decreased [Unknown]
  - Somnolence [Recovered/Resolved]
  - Nerve compression [Unknown]
  - Muscle spasms [Unknown]
